FAERS Safety Report 5209642-7 (Version None)
Quarter: 2006Q4

REPORT INFORMATION
  Report Type: 
  Country: None (occurrence: None)
  Receive Date: 20061122
  Receipt Date: 20051020
  Transmission Date: 20070319
  Serious: Yes (Other)
  Sender: FDA-Public Use
  Company Number: 2005143323

PATIENT
  Age: 60 Year
  Sex: Male
  Weight: 68.0396 kg

DRUGS (7)
  1. LIPITOR [Suspect]
     Indication: BLOOD CHOLESTEROL INCREASED
     Dosage: 10 MG (10 MG, 1 IN 1 D),
     Dates: end: 20051011
  2. VITAMIN C (VITAMIN C) [Concomitant]
  3. BETACAROTENE (BETACAROTENE) [Concomitant]
  4. PROTONIX [Concomitant]
  5. PEPCID [Concomitant]
  6. ACETYL SALICYLIC ACID USP BAT [Concomitant]
  7. VITAMIN E [Concomitant]

REACTIONS (3)
  - BLOOD CREATINE PHOSPHOKINASE INCREASED [None]
  - FATIGUE [None]
  - MALAISE [None]
